FAERS Safety Report 11641699 (Version 1)
Quarter: 2015Q4

REPORT INFORMATION
  Report Type: Spontaneous
  Country: US (occurrence: US)
  Receive Date: 20151019
  Receipt Date: 20151019
  Transmission Date: 20160304
  Serious: No
  Sender: FDA-Public Use
  Company Number: US-DEP_07806_2015

PATIENT
  Age: 67 Year
  Sex: Female

DRUGS (7)
  1. GABAPENTIN. [Concomitant]
     Active Substance: GABAPENTIN
     Indication: BACK PAIN
     Dosage: UNK
     Dates: start: 2005
  2. MELOXICAM. [Concomitant]
     Active Substance: MELOXICAM
     Indication: BACK PAIN
     Dosage: UNK
     Dates: start: 2000
  3. PANTOPRAZOLE [Concomitant]
     Active Substance: PANTOPRAZOLE SODIUM
     Indication: GASTROOESOPHAGEAL REFLUX DISEASE
     Dosage: UNK
     Dates: start: 2000
  4. LEVOTHYROXINE. [Concomitant]
     Active Substance: LEVOTHYROXINE
     Indication: THYROID DISORDER
     Dosage: UNK
     Dates: start: 1990
  5. NUCYNTA ER [Suspect]
     Active Substance: TAPENTADOL HYDROCHLORIDE
     Indication: PAIN
     Dosage: 50 MG, EVERY 12 HRS
     Route: 048
     Dates: start: 20140918, end: 20141030
  6. OXYCODONE [Concomitant]
     Active Substance: OXYCODONE
     Indication: BACK PAIN
     Dosage: UNK
     Dates: start: 2005
  7. NUCYNTA ER [Suspect]
     Active Substance: TAPENTADOL HYDROCHLORIDE
     Indication: BACK PAIN
     Dosage: 150 MG, EVERY 12 HRS
     Route: 048
     Dates: start: 20140213

REACTIONS (12)
  - Emotional disorder [Recovered/Resolved]
  - Aggression [Recovered/Resolved]
  - Nervousness [Recovered/Resolved]
  - Drug dose omission [Unknown]
  - Sedation [Recovered/Resolved]
  - Pain in extremity [Not Recovered/Not Resolved]
  - Personality change [Recovered/Resolved]
  - Social avoidant behaviour [Recovered/Resolved]
  - Feeling abnormal [Recovered/Resolved]
  - Impulse-control disorder [Recovered/Resolved]
  - Anger [Recovered/Resolved]
  - Amnesia [Recovered/Resolved]

NARRATIVE: CASE EVENT DATE: 20140222
